FAERS Safety Report 14761267 (Version 1)
Quarter: 2018Q2

REPORT INFORMATION
  Report Type: Report from Study
  Country: MX (occurrence: MX)
  Receive Date: 20180415
  Receipt Date: 20180415
  Transmission Date: 20180711
  Serious: Yes (Other)
  Sender: FDA-Public Use
  Company Number: PHHY2018MX057644

PATIENT
  Age: 16 Year
  Sex: Male
  Weight: 35 kg

DRUGS (3)
  1. HYDROCORTISONE. [Concomitant]
     Active Substance: HYDROCORTISONE
     Indication: NERVOUS SYSTEM DISORDER
     Dosage: 15 MG, UNK (10 MG IN THE MORNING AND 5 MG IN THE NIGHT)
     Route: 065
     Dates: start: 201708
  2. OMNITROPE [Suspect]
     Active Substance: SOMATROPIN
     Indication: GROWTH HORMONE DEFICIENCY
     Dosage: 1.6 MG, QD
     Route: 058
     Dates: start: 20180315
  3. LEVOTHYROXINE. [Concomitant]
     Active Substance: LEVOTHYROXINE
     Indication: HYPOTHYROIDISM
     Dosage: 75 UG, QD
     Route: 065
     Dates: start: 201607

REACTIONS (7)
  - Headache [Recovered/Resolved]
  - Head discomfort [Unknown]
  - Anxiety [Unknown]
  - Incorrect dose administered by device [Unknown]
  - Injection site inflammation [Unknown]
  - Injection site extravasation [Unknown]
  - Injection site discolouration [Unknown]

NARRATIVE: CASE EVENT DATE: 20180315
